FAERS Safety Report 24565060 (Version 3)
Quarter: 2025Q3

REPORT INFORMATION
  Report Type: Report from Study
  Country: CA (occurrence: CA)
  Receive Date: 20241030
  Receipt Date: 20250724
  Transmission Date: 20251021
  Serious: Yes (Hospitalization, Other)
  Sender: VERITY PHARMACEUTICALS INC.
  Company Number: CA-VER-202400527

PATIENT
  Age: 76 Year
  Sex: Male

DRUGS (13)
  1. TRELSTAR [Suspect]
     Active Substance: TRIPTORELIN PAMOATE
     Indication: Prostate cancer
     Dosage: POWDER FOR PROLONGED-RELEASE SUSPENSION FOR INJECT
     Route: 030
     Dates: start: 20250114, end: 20250114
  2. TRELSTAR [Suspect]
     Active Substance: TRIPTORELIN PAMOATE
     Indication: Prostate cancer
     Dosage: POWDER FOR PROLONGED-RELEASE SUSPENSION FOR INJECT
     Route: 030
     Dates: start: 20250415, end: 20250415
  3. TRELSTAR [Suspect]
     Active Substance: TRIPTORELIN PAMOATE
     Indication: Prostate cancer
     Dosage: POWDER FOR PROLONGED-RELEASE SUSPENSION FOR INJECT
     Route: 030
     Dates: start: 20250715, end: 20250715
  4. TRELSTAR [Suspect]
     Active Substance: TRIPTORELIN PAMOATE
     Indication: Prostate cancer
     Dosage: POWDER FOR PROLONGED-RELEASE SUSPENSION FOR INJECTION.
     Route: 030
     Dates: start: 20220809, end: 20220809
  5. TRELSTAR [Suspect]
     Active Substance: TRIPTORELIN PAMOATE
     Indication: Prostate cancer
     Dosage: POWDER FOR PROLONGED-RELEASE SUSPENSION FOR INJECTION.
     Route: 030
     Dates: start: 20221109, end: 20221109
  6. TRELSTAR [Suspect]
     Active Substance: TRIPTORELIN PAMOATE
     Indication: Prostate cancer
     Dosage: START DATE: 15-OCT-24??POWDER FOR PROLONGED-RELEASE SUSPENSION FOR INJECTION.
     Route: 030
     Dates: end: 20241015
  7. TRELSTAR [Suspect]
     Active Substance: TRIPTORELIN PAMOATE
     Indication: Prostate cancer
     Dosage: START DATE: 16-APR-24??POWDER FOR PROLONGED-RELEASE SUSPENSION FOR INJECTION.
     Route: 030
     Dates: end: 20240416
  8. TRELSTAR [Suspect]
     Active Substance: TRIPTORELIN PAMOATE
     Indication: Prostate cancer
     Dosage: START DATE: 16-JAN-24??POWDER FOR PROLONGED-RELEASE SUSPENSION FOR INJECTION.
     Route: 030
     Dates: end: 20240116
  9. TRELSTAR [Suspect]
     Active Substance: TRIPTORELIN PAMOATE
     Indication: Prostate cancer
     Dosage: START DATE: 16-JUL-24??POWDER FOR PROLONGED-RELEASE SUSPENSION FOR INJECTION.
     Route: 030
     Dates: end: 20240716
  10. TRELSTAR [Suspect]
     Active Substance: TRIPTORELIN PAMOATE
     Indication: Prostate cancer
     Dosage: START DATE: 17-OCT-23??POWDER FOR PROLONGED-RELEASE SUSPENSION FOR INJECTION.
     Route: 030
     Dates: end: 20231017
  11. TRELSTAR [Suspect]
     Active Substance: TRIPTORELIN PAMOATE
     Indication: Prostate cancer
     Dosage: START DATE: 18-JUL-23??POWDER FOR PROLONGED-RELEASE SUSPENSION FOR INJECTION.
     Route: 030
     Dates: end: 20230718
  12. TRELSTAR [Suspect]
     Active Substance: TRIPTORELIN PAMOATE
     Indication: Prostate cancer
     Dosage: START DATE: 25-APR-23??POWDER FOR PROLONGED-RELEASE SUSPENSION FOR INJECTION.
     Route: 030
     Dates: end: 20230425
  13. TRELSTAR [Suspect]
     Active Substance: TRIPTORELIN PAMOATE
     Indication: Prostate cancer
     Dosage: START DATE: 31-JAN-23??POWDER FOR PROLONGED-RELEASE SUSPENSION FOR INJECTION.
     Route: 030
     Dates: end: 20230131

REACTIONS (6)
  - Blood pressure abnormal [Unknown]
  - Blood pressure increased [Unknown]
  - Heart rate decreased [Unknown]
  - Blood pressure diastolic decreased [Unknown]
  - Pneumonia [Recovering/Resolving]
  - Inappropriate schedule of product administration [Recovered/Resolved]

NARRATIVE: CASE EVENT DATE: 20221109
